FAERS Safety Report 8186277-8 (Version None)
Quarter: 2012Q1

REPORT INFORMATION
  Report Type: 
  Country: None (occurrence: None)
  Receive Date: 20120306
  Receipt Date: 20120228
  Transmission Date: 20120608
  Serious: Yes (Hospitalization, Other)
  Sender: FDA-Public Use
  Company Number: US-BAYER-201016912NA

PATIENT
  Age: 22 Year
  Sex: Female
  Weight: 79.819 kg

DRUGS (4)
  1. MULTI-VITAMINS [Concomitant]
     Dosage: EVERYDAY, +#8220;WITHIN 20 DAYS OF ALLEGED RELATED INJURY+#8221;
  2. YASMIN [Suspect]
     Indication: CONTRACEPTION
     Route: 048
     Dates: start: 20040513, end: 20050816
  3. YASMIN [Suspect]
     Indication: ACNE
  4. DIETARY SUPPLEMENTS [Concomitant]
     Dosage: EVERYDAY, +#8220;WITHIN 20 DAYS OF ALLEGED RELATED INJURY+#8221;

REACTIONS (6)
  - SCAR [None]
  - CHOLECYSTITIS ACUTE [None]
  - EMOTIONAL DISTRESS [None]
  - GALLBLADDER INJURY [None]
  - CHOLELITHIASIS [None]
  - PAIN [None]
